FAERS Safety Report 9396040 (Version 1)
Quarter: 2013Q3

REPORT INFORMATION
  Report Type: Spontaneous
  Country: ES (occurrence: ES)
  Receive Date: 20130711
  Receipt Date: 20130711
  Transmission Date: 20140515
  Serious: Yes (Hospitalization)
  Sender: FDA-Public Use
  Company Number: ES-GLAXOSMITHKLINE-B0907113A

PATIENT
  Age: 59 Year
  Sex: Male

DRUGS (1)
  1. NIQUITIN MINI LOZENGES 4MG [Suspect]
     Indication: PRODUCT USED FOR UNKNOWN INDICATION
     Route: 065
     Dates: start: 20130610

REACTIONS (1)
  - Cerebrovascular accident [Recovered/Resolved with Sequelae]
